FAERS Safety Report 12881015 (Version 1)
Quarter: 2016Q4

REPORT INFORMATION
  Report Type: Spontaneous
  Country: US (occurrence: US)
  Receive Date: 20161025
  Receipt Date: 20161025
  Transmission Date: 20170207
  Serious: No
  Sender: FDA-Public Use
  Company Number: US-JNJFOC-20160927226

PATIENT
  Age: 29 Year
  Sex: Male

DRUGS (1)
  1. RISPERDAL [Suspect]
     Active Substance: RISPERIDONE
     Indication: SCHIZOPHRENIA
     Dosage: FROM QUARTER 3 OF 2009
     Route: 065
     Dates: start: 2009, end: 2013

REACTIONS (3)
  - Impaired quality of life [Unknown]
  - Confusional state [Unknown]
  - Treatment noncompliance [Unknown]
